FAERS Safety Report 8788466 (Version 1)
Quarter: 2012Q4

REPORT INFORMATION
  Report Type: 
  Country: US (occurrence: US)
  Receive Date: 20120914
  Receipt Date: 20120914
  Transmission Date: 20130627
  Serious: No
  Sender: FDA-Public Use
  Company Number: US-VERTEX PHARMACEUTICAL INC.-AE-2012-011933

PATIENT

DRUGS (5)
  1. INCIVEK [Suspect]
     Indication: HEPATITIS C
     Route: 048
  2. ZERTEC [Concomitant]
  3. HYDROXYZINE [Concomitant]
  4. BENADRYL [Concomitant]
  5. ATARAX [Concomitant]

REACTIONS (2)
  - Adverse event [Not Recovered/Not Resolved]
  - Rash [Unknown]
